FAERS Safety Report 9994846 (Version 1)
Quarter: 2014Q1

REPORT INFORMATION
  Report Type: Spontaneous
  Country: US (occurrence: None)
  Receive Date: 20140306
  Receipt Date: 20140306
  Transmission Date: 20141002
  Serious: Yes (Hospitalization)
  Sender: FDA-Public Use
  Company Number: 14000394

PATIENT
  Age: 86 Year
  Sex: Female

DRUGS (4)
  1. KLOR-CON [Suspect]
     Indication: BLOOD POTASSIUM ABNORMAL
     Dosage: OTHER
     Dates: start: 20120927
  2. LASIX (FUROSEMIDE) [Concomitant]
  3. CARVEDILOL (CARVEDILOL) [Concomitant]
  4. LISINOPRIL (LISINOPRIL) [Concomitant]

REACTIONS (7)
  - Pulseless electrical activity [None]
  - Bradycardia [None]
  - Tachycardia [None]
  - Convulsion [None]
  - Hyperkalaemia [None]
  - Abdominal distension [None]
  - Cardiac arrest [None]
